FAERS Safety Report 6457360-X (Version None)
Quarter: 2009Q4

REPORT INFORMATION
  Report Type: 
  Country: None (occurrence: None)
  Receive Date: 20091119
  Receipt Date: 20091113
  Transmission Date: 20100525
  Serious: Yes (Other)
  Sender: FDA-Public Use
  Company Number: A0782907A

PATIENT

DRUGS (2)
  1. UREA PEROXIDE [Suspect]
     Indication: DRUG USE FOR UNKNOWN INDICATION
     Dosage: UNK / UNK / AURAL
     Route: 001
  2. UNK [Concomitant]

REACTIONS (8)
  - ANXIETY [None]
  - DEAFNESS [None]
  - DEPRESSION [None]
  - EAR INFECTION [None]
  - NERVOUSNESS [None]
  - OPEN WOUND [None]
  - TINNITUS [None]
  - TYMPANIC MEMBRANE PERFORATION [None]
